FAERS Safety Report 7460780-8 (Version None)
Quarter: 2011Q2

REPORT INFORMATION
  Report Type: 
  Country: None (occurrence: None)
  Receive Date: 20110505
  Receipt Date: 20110428
  Transmission Date: 20111010
  Serious: Yes (Death, Other)
  Sender: FDA-Public Use
  Company Number: PHHY2011NL35903

PATIENT
  Sex: Male
  Weight: 116 kg

DRUGS (15)
  1. ENALAPRIL MALEATE AND HYDROCHLOROTHIAZIDE [Concomitant]
     Dosage: UNK
  2. ALFACALCIDOL [Concomitant]
     Dosage: 0.25 MG, BID
  3. CLOZAPINE [Suspect]
     Indication: PSYCHOTIC DISORDER DUE TO A GENERAL MEDICAL CONDITION
     Dosage: 25 MG, QD
     Dates: start: 20110328, end: 20110329
  4. CLOZAPINE [Suspect]
     Indication: INJURY
     Dosage: 25 MG, QD
  5. METFORMIN [Concomitant]
     Dosage: 500 MG, BID
  6. SIMVASTATIN [Concomitant]
     Dosage: 10 MG, QD
  7. CLOZAPINE [Suspect]
     Indication: AGGRESSION
     Dosage: 12.5 MG, QD
     Dates: start: 20110330
  8. METOPROLOL SUCCINATE [Concomitant]
     Dosage: 50 MG, BID
  9. CALCICHEW D3 [Concomitant]
     Dosage: 500MG/4001E
  10. ISOSORBIDE MONONITRATE [Concomitant]
     Dosage: 40 MG, QD
  11. ALFUZOSIN HYDROCHLORIDE [Concomitant]
     Dosage: 10 MG, QD
  12. NOVOMIX [Concomitant]
     Dosage: 30 PENFILL 100E/ML CARTRIDGE 3ML
  13. OXAZEPAM [Concomitant]
     Dosage: 10 MG, QD
  14. PARACETAMOL [Concomitant]
     Indication: PAIN
     Dosage: 500 MG, PRN
  15. ASPIRIN [Concomitant]
     Dosage: 80 MG, QD

REACTIONS (13)
  - RESTLESSNESS [None]
  - SYNCOPE [None]
  - HYPOTENSION [None]
  - RESPIRATORY ARREST [None]
  - BRAIN STEM SYNDROME [None]
  - FAECAL INCONTINENCE [None]
  - LOSS OF CONSCIOUSNESS [None]
  - STATUS EPILEPTICUS [None]
  - CARDIAC ARREST [None]
  - HALLUCINATION [None]
  - DISORIENTATION [None]
  - SEDATION [None]
  - CIRCULATORY COLLAPSE [None]
